FAERS Safety Report 18258752 (Version 1)
Quarter: 2020Q3

REPORT INFORMATION
  Report Type: Spontaneous
  Country: JP (occurrence: JP)
  Receive Date: 20200911
  Receipt Date: 20200911
  Transmission Date: 20201103
  Serious: Yes (Other)
  Sender: FDA-Public Use
  Company Number: JP-GILEAD-2020-0494266

PATIENT
  Age: 4 Decade
  Sex: Female

DRUGS (6)
  1. RIFAMPICIN [Concomitant]
     Active Substance: RIFAMPIN
     Indication: LYMPH NODE TUBERCULOSIS
     Dosage: UNK
  2. ISONIAZID. [Concomitant]
     Active Substance: ISONIAZID
     Indication: LYMPH NODE TUBERCULOSIS
     Dosage: UNK
  3. ETHAMBUTOL HYDROCHLORIDE. [Concomitant]
     Active Substance: ETHAMBUTOL HYDROCHLORIDE
     Indication: LYMPH NODE TUBERCULOSIS
     Dosage: UNK
  4. TRUVADA [Suspect]
     Active Substance: EMTRICITABINE\TENOFOVIR DISOPROXIL FUMARATE
     Indication: HIV INFECTION
     Dosage: UNK
     Route: 065
  5. PYRAZINAMIDE. [Concomitant]
     Active Substance: PYRAZINAMIDE
     Indication: LYMPH NODE TUBERCULOSIS
     Dosage: UNK
  6. RALTEGRAVIR POTASSIUM [Concomitant]
     Active Substance: RALTEGRAVIR POTASSIUM
     Indication: HIV INFECTION
     Dosage: UNK

REACTIONS (3)
  - Lymphadenopathy [Unknown]
  - Granulomatous lymphadenitis [Unknown]
  - Immune reconstitution inflammatory syndrome associated tuberculosis [Unknown]
